FAERS Safety Report 4433474-0 (Version None)
Quarter: 2004Q3

REPORT INFORMATION
  Report Type: 
  Country: None (occurrence: None)
  Receive Date: 20040824
  Receipt Date: 20040816
  Transmission Date: 20050211
  Serious: Yes (Life-Threatening, Hospitalization, Disabling)
  Sender: FDA-Public Use
  Company Number: 2004AP03430

PATIENT
  Age: 62 Year
  Sex: Male

DRUGS (18)
  1. OMEPRAL [Suspect]
     Indication: DUODENAL ULCER
     Dosage: 20 MG DAILY PO
     Route: 048
     Dates: start: 20040511, end: 20040519
  2. RACOL [Concomitant]
  3. AMINOFLUID [Concomitant]
  4. VITAMIN D IN CAPSULE [Concomitant]
  5. VEEN [Concomitant]
  6. XANBON [Concomitant]
  7. ZANTAC [Concomitant]
  8. IRON DEXTRAN [Concomitant]
  9. CEFAZOLIN [Concomitant]
  10. SOLITA T [Concomitant]
  11. MAC AMIN [Concomitant]
  12. MEDIUM [Concomitant]
  13. NIVADIL [Concomitant]
  14. BLOPRESS [Concomitant]
  15. MUCOSTA [Concomitant]
  16. RADICUT [Concomitant]
  17. GLYCEOL [Concomitant]
  18. ALLOID [Concomitant]

REACTIONS (24)
  - ALANINE AMINOTRANSFERASE INCREASED [None]
  - ASPARTATE AMINOTRANSFERASE INCREASED [None]
  - ATRIAL FIBRILLATION [None]
  - BLOOD ALKALINE PHOSPHATASE INCREASED [None]
  - BLOOD POTASSIUM DECREASED [None]
  - BODY TEMPERATURE INCREASED [None]
  - C-REACTIVE PROTEIN INCREASED [None]
  - CEREBRAL INFARCTION [None]
  - COMA [None]
  - DISSEMINATED INTRAVASCULAR COAGULATION [None]
  - HEART RATE DECREASED [None]
  - HEPATIC FUNCTION ABNORMAL [None]
  - HEPATOBILIARY INFECTION [None]
  - HYPERCAPNIA [None]
  - INFECTION [None]
  - LEUKOPENIA [None]
  - MYOCARDIAL INFARCTION [None]
  - NORMOCHROMIC NORMOCYTIC ANAEMIA [None]
  - PLATELET COUNT DECREASED [None]
  - RENAL FAILURE ACUTE [None]
  - SEPTIC SHOCK [None]
  - SYSTEMIC INFLAMMATORY RESPONSE SYNDROME [None]
  - VENTRICULAR EXTRASYSTOLES [None]
  - WHITE BLOOD CELL COUNT INCREASED [None]
